FAERS Safety Report 6811788-4 (Version None)
Quarter: 2010Q2

REPORT INFORMATION
  Report Type: 
  Country: None (occurrence: None)
  Receive Date: 20100628
  Receipt Date: 20100609
  Transmission Date: 20101027
  Serious: Yes (Life-Threatening, Hospitalization, Other)
  Sender: FDA-Public Use
  Company Number: 2010-00463

PATIENT
  Age: 60 Year
  Sex: Female
  Weight: 60 kg

DRUGS (9)
  1. CEFTRIAXONE (ROCEPHIN) [Suspect]
     Indication: ARTHRITIS
     Dosage: INTRAVENOUS
     Route: 042
     Dates: start: 20100401
  2. MEROPENEM [Suspect]
     Indication: ARTHRITIS
     Dosage: INTRAVENOUS
     Route: 042
     Dates: start: 20100403, end: 20100410
  3. BUMETANIDE [Concomitant]
  4. HEPARIN [Concomitant]
  5. METOLAZONE [Concomitant]
  6. OMEPRAZOLE [Concomitant]
  7. RAMIPRIL [Concomitant]
  8. SERETIDE (FLUTICASONE PROPIONATE MICRONISED+SALMETEROL XINAFOATE MICRO [Concomitant]
  9. TIOTROPIUM BROMIDE [Concomitant]

REACTIONS (12)
  - ACUTE GENERALISED EXANTHEMATOUS PUSTULOSIS [None]
  - BACTERIAL SEPSIS [None]
  - BACTEROIDES INFECTION [None]
  - BLOOD PRESSURE DECREASED [None]
  - DIARRHOEA [None]
  - GENERAL PHYSICAL HEALTH DETERIORATION [None]
  - HYPERSENSITIVITY [None]
  - PNEUMONIA [None]
  - PUSTULAR PSORIASIS [None]
  - SKIN EXFOLIATION [None]
  - SKIN LESION [None]
  - SKIN NECROSIS [None]
